FAERS Safety Report 13712796 (Version 2)
Quarter: 2017Q3

REPORT INFORMATION
  Report Type: Spontaneous
  Country: GB (occurrence: GB)
  Receive Date: 20170703
  Receipt Date: 20170721
  Transmission Date: 20171127
  Serious: Yes (Hospitalization, Other)
  Sender: FDA-Public Use
  Company Number: GB-TAKEDA-2017TUS013675

PATIENT
  Age: 29 Year
  Sex: Male

DRUGS (4)
  1. OCTASA [Concomitant]
     Active Substance: MESALAMINE
     Dosage: 2.4 G, BID
  2. AZATHIOPRINE. [Concomitant]
     Active Substance: AZATHIOPRINE
     Dosage: 200 MG, QD
  3. PREDNISOLONE. [Concomitant]
     Active Substance: PREDNISOLONE
     Dosage: 10 MG, QD
  4. ENTYVIO [Suspect]
     Active Substance: VEDOLIZUMAB
     Indication: COLITIS ULCERATIVE
     Dosage: 300 MG, Q8WEEKS
     Route: 065

REACTIONS (2)
  - Treatment failure [Unknown]
  - Colectomy [Recovered/Resolved]

NARRATIVE: CASE EVENT DATE: 201605
